FAERS Safety Report 13759269 (Version 2)
Quarter: 2017Q3

REPORT INFORMATION
  Report Type: Spontaneous
  Country: US (occurrence: US)
  Receive Date: 20170717
  Receipt Date: 20170811
  Transmission Date: 20171127
  Serious: Yes (Death, Hospitalization, Other)
  Sender: FDA-Public Use
  Company Number: US-PIRAMAL CRITICAL CARE LIMITED-2017-PEL-000789

PATIENT
  Age: 37 Year
  Sex: Male
  Weight: 93.6 kg

DRUGS (6)
  1. TRAZODONE [Concomitant]
     Active Substance: TRAZODONE HYDROCHLORIDE
     Dosage: UNK
     Route: 065
  2. GABLOFEN [Suspect]
     Active Substance: BACLOFEN
     Indication: HEAD INJURY
  3. GABLOFEN [Suspect]
     Active Substance: BACLOFEN
     Indication: BRAIN INJURY
  4. CLONAZEPAM. [Concomitant]
     Active Substance: CLONAZEPAM
     Dosage: UNK
     Route: 065
  5. ACETAMINOPHEN. [Concomitant]
     Active Substance: ACETAMINOPHEN
     Dosage: UNK
     Route: 065
  6. GABLOFEN [Suspect]
     Active Substance: BACLOFEN
     Indication: MUSCLE SPASTICITY
     Dosage: UNK
     Route: 037
     Dates: start: 200412

REACTIONS (9)
  - Cardiac arrest [Fatal]
  - Apnoea [Unknown]
  - Condition aggravated [Unknown]
  - Pulse absent [Fatal]
  - Agitation [Unknown]
  - Regurgitation [Unknown]
  - Device issue [Unknown]
  - Sepsis [Fatal]
  - Poor quality sleep [Unknown]

NARRATIVE: CASE EVENT DATE: 20170528
